FAERS Safety Report 19403497 (Version 5)
Quarter: 2021Q3

REPORT INFORMATION
  Report Type: Report from Study
  Country: CN (occurrence: CN)
  Receive Date: 20210610
  Receipt Date: 20210728
  Transmission Date: 20211014
  Serious: Yes (Hospitalization)
  Sender: FDA-Public Use
  Company Number: CN-EVEREST MEDICINES II (HK) LIMITED-2021-0529390

PATIENT
  Age: 44 Year
  Sex: Female
  Weight: 66 kg

DRUGS (13)
  1. CIMETIDINE [Concomitant]
     Active Substance: CIMETIDINE
     Indication: INFUSION RELATED REACTION
     Dosage: 0.2 G, QD
     Route: 041
     Dates: start: 20210318, end: 20210318
  2. CIMETIDINE [Concomitant]
     Active Substance: CIMETIDINE
     Dosage: 0.2 G, QD
     Route: 041
     Dates: start: 20210401, end: 20210401
  3. PALONOSETRON HYDROCHLORIDE. [Concomitant]
     Active Substance: PALONOSETRON HYDROCHLORIDE
     Indication: PROPHYLAXIS OF NAUSEA AND VOMITING
     Dosage: 0.25 MG, QD
     Route: 041
     Dates: start: 20210318, end: 20210318
  4. DEXAMETHASONE SODIUM PHOSPHATE. [Concomitant]
     Active Substance: DEXAMETHASONE SODIUM PHOSPHATE
     Dosage: 5 MG, QD
     Route: 041
     Dates: start: 20210401, end: 20210401
  5. PARACETAMOL [Concomitant]
     Active Substance: ACETAMINOPHEN
     Dosage: 0.65 MG, QD
     Route: 048
     Dates: start: 20210401, end: 20210401
  6. SACITUZUMAB GOVITECAN. [Suspect]
     Active Substance: SACITUZUMAB GOVITECAN
     Indication: TRIPLE NEGATIVE BREAST CANCER
     Dosage: 10 MG/KG, DAYS 1 AND 8 OF A 21 DAY CYCLE
     Route: 042
     Dates: start: 20210108, end: 20210401
  7. DEXAMETHASONE SODIUM PHOSPHATE. [Concomitant]
     Active Substance: DEXAMETHASONE SODIUM PHOSPHATE
     Indication: PROPHYLAXIS OF NAUSEA AND VOMITING
     Dosage: 5 MG, QD
     Route: 041
     Dates: start: 20210318, end: 20210318
  8. PALONOSETRON HYDROCHLORIDE. [Concomitant]
     Active Substance: PALONOSETRON HYDROCHLORIDE
     Dosage: 0.25 MG, QD
     Route: 041
     Dates: start: 20210401, end: 20210401
  9. PROMETHAZINE HYDROCHLORIDE. [Concomitant]
     Active Substance: PROMETHAZINE HYDROCHLORIDE
     Indication: INFUSION RELATED REACTION
     Dosage: 25 MG, QD
     Route: 041
     Dates: start: 20210318, end: 20210318
  10. PROMETHAZINE HYDROCHLORIDE. [Concomitant]
     Active Substance: PROMETHAZINE HYDROCHLORIDE
     Dosage: 25 MG, QD
     Route: 041
     Dates: start: 20210401, end: 20210401
  11. ESOMEPRAZOLE SODIUM. [Concomitant]
     Active Substance: ESOMEPRAZOLE SODIUM
     Dosage: UNK
     Dates: start: 20210411, end: 20210411
  12. PARACETAMOL [Concomitant]
     Active Substance: ACETAMINOPHEN
     Indication: INFUSION RELATED REACTION
     Dosage: 0.65 MG, QD
     Route: 048
     Dates: start: 20210318, end: 20210318
  13. ROXATIDINE ACETATE [Concomitant]
     Active Substance: ROXATIDINE ACETATE
     Dosage: UNK
     Dates: start: 20210413, end: 20210415

REACTIONS (3)
  - Alanine aminotransferase increased [Recovered/Resolved]
  - Blood bilirubin increased [Not Recovered/Not Resolved]
  - Aspartate aminotransferase increased [Recovered/Resolved]

NARRATIVE: CASE EVENT DATE: 20210406
